FAERS Safety Report 25106401 (Version 1)
Quarter: 2025Q1

REPORT INFORMATION
  Report Type: Report from Study
  Country: TW (occurrence: TW)
  Receive Date: 20250321
  Receipt Date: 20250321
  Transmission Date: 20250408
  Serious: Yes (Other)
  Sender: GILEAD
  Company Number: TW-GILEAD-2025-0707614

PATIENT
  Age: 49 Year
  Sex: Female

DRUGS (1)
  1. TENOFOVIR ALAFENAMIDE [Suspect]
     Active Substance: TENOFOVIR ALAFENAMIDE
     Indication: Hepatitis B
     Route: 048

REACTIONS (2)
  - Cryoglobulinaemia [Unknown]
  - Arthropathy [Unknown]
